FAERS Safety Report 8918299 (Version 1)
Quarter: 2012Q4

REPORT INFORMATION
  Report Type: 
  Country: US (occurrence: US)
  Receive Date: 20121120
  Receipt Date: 20121120
  Transmission Date: 20130627
  Serious: No
  Sender: FDA-Public Use
  Company Number: US-ASTRAZENECA-2012SE25719

PATIENT
  Age: 64 Year
  Sex: Female

DRUGS (8)
  1. NEXIUM [Suspect]
     Dosage: IN MORNING
     Route: 048
  2. PRILOSEC OTC [Suspect]
     Route: 048
  3. OMEPRAZOLE [Suspect]
     Route: 048
  4. LISINOPRIL [Concomitant]
  5. ONGLYZA [Concomitant]
  6. ZETIA [Concomitant]
  7. RANITIDINE [Concomitant]
     Indication: DYSPEPSIA
  8. TRIAMPTERENE [Concomitant]

REACTIONS (4)
  - Gastrooesophageal reflux disease [Unknown]
  - Discomfort [Unknown]
  - Dyspepsia [Unknown]
  - Drug ineffective [Unknown]
